FAERS Safety Report 4474718-9 (Version None)
Quarter: 2004Q4

REPORT INFORMATION
  Report Type: 
  Country: None (occurrence: None)
  Receive Date: 20041012
  Receipt Date: 20040927
  Transmission Date: 20050328
  Serious: Yes (Life-Threatening, Hospitalization, Other)
  Sender: FDA-Public Use
  Company Number: 2004071941

PATIENT
  Age: 30 Year
  Sex: Female

DRUGS (3)
  1. ZOLOFT [Suspect]
     Indication: ILL-DEFINED DISORDER
  2. OLANZAPINE [Suspect]
     Indication: ILL-DEFINED DISORDER
  3. BROMAZEPAM (BROMAZEPAM) [Suspect]
     Indication: ILL-DEFINED DISORDER

REACTIONS (5)
  - ASPIRATION [None]
  - LUNG DISORDER [None]
  - MULTIPLE DRUG OVERDOSE [None]
  - PLEURAL DISORDER [None]
  - SUICIDE ATTEMPT [None]
